FAERS Safety Report 21094272 (Version 1)
Quarter: 2022Q3

REPORT INFORMATION
  Report Type: Spontaneous
  Country: CA (occurrence: CA)
  Receive Date: 20220718
  Receipt Date: 20220718
  Transmission Date: 20221026
  Serious: Yes (Other)
  Sender: FDA-Public Use
  Company Number: CA-PFIZER INC-2018195966

PATIENT
  Age: 38 Year
  Sex: Male

DRUGS (1)
  1. CELEBREX [Suspect]
     Active Substance: CELECOXIB
     Dosage: UNK
     Dates: start: 2000

REACTIONS (10)
  - Gastrointestinal haemorrhage [Unknown]
  - Anastomotic fistula [Unknown]
  - Intestinal anastomosis complication [Unknown]
  - Rectal haemorrhage [Unknown]
  - Weight decreased [Unknown]
  - Asthenia [Unknown]
  - Pyrexia [Unknown]
  - Pain [Unknown]
  - Dizziness [Unknown]
  - Full blood count decreased [Unknown]
